FAERS Safety Report 9972122 (Version 1)
Quarter: 2014Q1

REPORT INFORMATION
  Report Type: Spontaneous
  Country: US (occurrence: None)
  Receive Date: 20140305
  Receipt Date: 20140305
  Transmission Date: 20141002
  Serious: Yes (Hospitalization, Disabling)
  Sender: FDA-Public Use
  Company Number: None

PATIENT
  Age: 64 Year
  Sex: Female
  Weight: 103.42 kg

DRUGS (1)
  1. LITHIUM CARBONATE ER, 300 MG TB, ROXANE LABS [Suspect]
     Indication: DEPRESSION
     Dosage: TAKEN BY MOUTH; 3 PER DAY
     Route: 048

REACTIONS (3)
  - Communication disorder [None]
  - Aphasia [None]
  - Fear [None]
